FAERS Safety Report 10342366 (Version 1)
Quarter: 2014Q3

REPORT INFORMATION
  Report Type: Spontaneous
  Country: US (occurrence: US)
  Receive Date: 20140725
  Receipt Date: 20140725
  Transmission Date: 20150326
  Serious: Yes (Hospitalization)
  Sender: FDA-Public Use
  Company Number: US-GLAXOSMITHKLINE-A1051130A

PATIENT
  Age: 62 Year
  Sex: Male

DRUGS (2)
  1. KEPPRA [Concomitant]
     Active Substance: LEVETIRACETAM
  2. LAMICTAL XR [Suspect]
     Active Substance: LAMOTRIGINE
     Indication: CONVULSION
     Dosage: 100MG UNKNOWN
     Dates: start: 20130901

REACTIONS (1)
  - Convulsion [Unknown]
